FAERS Safety Report 5033932-4 (Version None)
Quarter: 2006Q2

REPORT INFORMATION
  Report Type: 
  Country: None (occurrence: None)
  Receive Date: 20060623
  Receipt Date: 20060502
  Transmission Date: 20061013
  Serious: Yes (Other)
  Sender: FDA-Public Use
  Company Number: US-AMGEN-US178331

PATIENT
  Sex: Male
  Weight: 59 kg

DRUGS (13)
  1. ARANESP [Suspect]
     Indication: ANAEMIA OF MALIGNANT DISEASE
     Route: 058
     Dates: start: 20060413, end: 20060427
  2. OXALIPLATIN [Concomitant]
     Dates: start: 20060406
  3. XELODA [Concomitant]
     Dates: start: 20060406
  4. AVASTIN [Concomitant]
     Dates: start: 20060406
  5. MAGNESIUM [Concomitant]
     Dates: start: 20060406
  6. CALCIUM GLUCONATE [Concomitant]
     Dates: start: 20060406
  7. POTASSIUM [Concomitant]
     Dates: start: 20060406
  8. COMPAZINE [Concomitant]
     Dates: start: 20060406
  9. DECADRON [Concomitant]
     Dates: start: 20060406
  10. HYDROCHLOROTHIAZIDE [Concomitant]
     Dates: end: 20060402
  11. CLONIDINE [Concomitant]
     Dates: start: 20060427, end: 20060427
  12. LISINOPRIL [Concomitant]
     Dates: end: 20060421
  13. K-TAB [Concomitant]
     Dates: start: 20060412

REACTIONS (10)
  - ASTHENIA [None]
  - BLOOD POTASSIUM DECREASED [None]
  - DIZZINESS [None]
  - FATIGUE [None]
  - HAEMOGLOBIN DECREASED [None]
  - HYPERTENSION [None]
  - HYPOAESTHESIA [None]
  - PARAESTHESIA [None]
  - TRANSIENT ISCHAEMIC ATTACK [None]
  - VISION BLURRED [None]
